FAERS Safety Report 10409358 (Version 1)
Quarter: 2014Q3

REPORT INFORMATION
  Report Type: Report from Study
  Country: ZA (occurrence: ZA)
  Receive Date: 20140826
  Receipt Date: 20140826
  Transmission Date: 20150326
  Serious: Yes (Death, Hospitalization)
  Sender: FDA-Public Use
  Company Number: ZA-BAYER-2014-055779

PATIENT
  Sex: Female

DRUGS (1)
  1. BETAFERON [Suspect]
     Active Substance: INTERFERON BETA-1B
     Route: 058

REACTIONS (4)
  - Chemical poisoning [Fatal]
  - Hypoaesthesia [None]
  - Headache [None]
  - Visual acuity reduced [None]

NARRATIVE: CASE EVENT DATE: 20130410
